FAERS Safety Report 16098036 (Version 1)
Quarter: 2019Q1

REPORT INFORMATION
  Report Type: Spontaneous
  Country: ES (occurrence: ES)
  Receive Date: 20190320
  Receipt Date: 20190320
  Transmission Date: 20190418
  Serious: Yes (Death, Hospitalization)
  Sender: FDA-Public Use
  Company Number: ES-AMGEN-ESPSP2019042476

PATIENT
  Age: 79 Year
  Sex: Male

DRUGS (3)
  1. VECTIBIX [Suspect]
     Active Substance: PANITUMUMAB
     Indication: RECTAL ADENOCARCINOMA
     Dosage: 5 MILLILITER, CYCLICAL (20MG/ML)
     Route: 042
     Dates: start: 20180925, end: 20190109
  2. FLUOROURACIL ACCORD [FLUOROURACIL] [Concomitant]
     Active Substance: FLUOROURACIL SODIUM
     Indication: RECTAL ADENOCARCINOMA
     Dosage: 1000 MILLIGRAM, CYCLICAL (50 MG/ML)
     Route: 042
     Dates: start: 20180925, end: 20190109
  3. OXALIPLATIN TEVA [Suspect]
     Active Substance: OXALIPLATIN
     Indication: RECTAL ADENOCARCINOMA
     Dosage: 4 MILLIGRAM, CYCLICAL (5MG/ML)
     Route: 042
     Dates: start: 20180925, end: 20181212

REACTIONS (1)
  - Pulmonary fibrosis [Fatal]

NARRATIVE: CASE EVENT DATE: 20190124
